FAERS Safety Report 8308636-2 (Version None)
Quarter: 2012Q2

REPORT INFORMATION
  Report Type: 
  Country: None (occurrence: None)
  Receive Date: 20120424
  Receipt Date: 20100115
  Transmission Date: 20120825
  Serious: Yes (Hospitalization)
  Sender: FDA-Public Use
  Company Number: US-TEVA-2010000202

PATIENT
  Sex: Male
  Weight: 50 kg

DRUGS (8)
  1. ASPIRIN [Concomitant]
  2. WARFARIN SODIUM [Concomitant]
  3. ACETAMINOPHEN [Concomitant]
     Dates: end: 20100113
  4. PANTOPRAZOLE [Concomitant]
     Dosage: 80 MILLIGRAM;
     Route: 048
  5. METOPROLOL TARTRATE [Concomitant]
     Dosage: 100 MILLIGRAM;
     Route: 048
  6. AMLODIPINE [Concomitant]
     Dosage: 10 MILLIGRAM;
     Route: 048
  7. PROVIGIL [Suspect]
     Dosage: 400 MILLIGRAM;
     Route: 048
  8. OXYCODONE HCL [Concomitant]
     Route: 048

REACTIONS (1)
  - TRANSAMINASES INCREASED [None]
